FAERS Safety Report 9097428 (Version 2)
Quarter: 2013Q3

REPORT INFORMATION
  Report Type: Report from Study
  Country: US (occurrence: US)
  Receive Date: 20130212
  Receipt Date: 20130716
  Transmission Date: 20140515
  Serious: Yes (Death, Hospitalization)
  Sender: FDA-Public Use
  Company Number: US-ACTELION-A-US2013-79227

PATIENT
  Age: 58 Year
  Sex: Male

DRUGS (2)
  1. VENTAVIS [Suspect]
     Indication: PULMONARY ARTERIAL HYPERTENSION
     Dosage: UNK
     Route: 055
     Dates: end: 20130710
  2. SILDENAFIL [Concomitant]

REACTIONS (3)
  - Cardiac failure [Fatal]
  - Pulmonary oedema [Unknown]
  - Dyspnoea [Unknown]
